FAERS Safety Report 8052560-X (Version None)
Quarter: 2012Q1

REPORT INFORMATION
  Report Type: 
  Country: None (occurrence: None)
  Receive Date: 20120118
  Receipt Date: 20120110
  Transmission Date: 20120608
  Serious: No
  Sender: FDA-Public Use
  Company Number: US-BAYER-2012-005286

PATIENT
  Age: 54 Week
  Sex: Female

DRUGS (4)
  1. CALCIUM CHANNEL BLOCKERS [Concomitant]
  2. OXYGEN [Concomitant]
  3. VENTAVIS [Suspect]
     Indication: PULMONARY ARTERIAL HYPERTENSION
     Dosage: 20 ?G, UNK
     Route: 055
     Dates: start: 20110207
  4. TRACLEER [Suspect]
     Indication: PULMONARY ARTERIAL HYPERTENSION
     Dosage: UNK
     Route: 048
     Dates: start: 20101227, end: 20120110

REACTIONS (1)
  - HAEMATOLOGY TEST ABNORMAL [None]
